FAERS Safety Report 7783078-7 (Version None)
Quarter: 2011Q3

REPORT INFORMATION
  Report Type: 
  Country: None (occurrence: None)
  Receive Date: 20110926
  Receipt Date: 20110920
  Transmission Date: 20111222
  Serious: No
  Sender: FDA-Public Use
  Company Number: B0747701A

PATIENT
  Age: 41 Year
  Sex: Female

DRUGS (4)
  1. CLOZAPINE [Suspect]
     Indication: SCHIZOPHRENIA
     Dosage: 100 MG / ORAL
     Route: 048
     Dates: start: 20020101
  2. HALOPERIDOL [Concomitant]
  3. RISPERIDONE [Concomitant]
  4. LAMOTRIGINE [Suspect]
     Indication: PSYCHOTIC DISORDER
     Dosage: 100 MG
     Dates: start: 20070101

REACTIONS (3)
  - AGRANULOCYTOSIS [None]
  - EXTRAPYRAMIDAL DISORDER [None]
  - PSYCHOTIC DISORDER [None]
